FAERS Safety Report 7513593-2 (Version None)
Quarter: 2011Q2

REPORT INFORMATION
  Report Type: 
  Country: None (occurrence: None)
  Receive Date: 20110531
  Receipt Date: 20110519
  Transmission Date: 20111010
  Serious: Yes (Hospitalization)
  Sender: FDA-Public Use
  Company Number: US-ASTRAZENECA-2011SE30700

PATIENT
  Age: 49 Year
  Sex: Female
  Weight: 45.4 kg

DRUGS (10)
  1. SEROQUEL [Suspect]
     Route: 048
  2. SEROQUEL [Suspect]
     Route: 048
  3. IBUPROPHEN [Concomitant]
  4. SEROQUEL [Suspect]
     Indication: ANXIETY
     Route: 048
  5. LAMICTAL [Concomitant]
     Indication: CONVULSION
  6. SEROQUEL [Suspect]
     Indication: DEPRESSION
     Route: 048
  7. ESTROGENIC SUBSTANCE [Concomitant]
     Indication: HORMONE REPLACEMENT THERAPY
     Dosage: DAILY
  8. SEROQUEL [Suspect]
     Indication: BIPOLAR DISORDER
     Route: 048
  9. SEROQUEL [Suspect]
     Route: 048
  10. BENADRYL [Concomitant]
     Indication: ANXIETY

REACTIONS (6)
  - DEMENTIA [None]
  - CONFUSIONAL STATE [None]
  - HICCUPS [None]
  - DRUG DOSE OMISSION [None]
  - MOOD SWINGS [None]
  - WEIGHT DECREASED [None]
